FAERS Safety Report 5463839-X (Version None)
Quarter: 2007Q3

REPORT INFORMATION
  Report Type: 
  Country: None (occurrence: None)
  Receive Date: 20070919
  Receipt Date: 20070910
  Transmission Date: 20080115
  Serious: Yes (Other)
  Sender: FDA-Public Use
  Company Number: 40745

PATIENT
  Age: 48 Year
  Sex: Female

DRUGS (1)
  1. METHOTREXATE [Suspect]
     Dosage: 0.8 ML X ONCE WEEKLY  INJ
     Dates: start: 20070609, end: 20070909

REACTIONS (3)
  - DRUG DISPENSING ERROR [None]
  - MEDICATION ERROR [None]
  - WRONG DRUG ADMINISTERED [None]
